FAERS Safety Report 11854213 (Version 4)
Quarter: 2016Q1

REPORT INFORMATION
  Report Type: Report from Study
  Country: US (occurrence: US)
  Receive Date: 20151220
  Receipt Date: 20160201
  Transmission Date: 20160526
  Serious: Yes (Hospitalization)
  Sender: FDA-Public Use
  Company Number: US-BIOGEN-2015BI00162680

PATIENT
  Age: 52 Year
  Sex: Male

DRUGS (2)
  1. TECFIDERA [Interacting]
     Active Substance: DIMETHYL FUMARATE
     Route: 048
     Dates: start: 20150725
  2. TECFIDERA [Suspect]
     Active Substance: DIMETHYL FUMARATE
     Indication: MULTIPLE SCLEROSIS
     Route: 048
     Dates: start: 20150717, end: 20150724

REACTIONS (1)
  - Tremor [Unknown]

NARRATIVE: CASE EVENT DATE: 20151109
